FAERS Safety Report 20075324 (Version 2)
Quarter: 2021Q4

REPORT INFORMATION
  Report Type: Report from Study
  Country: HU (occurrence: HU)
  Receive Date: 20211116
  Receipt Date: 20211201
  Transmission Date: 20220303
  Serious: Yes (Hospitalization, Other)
  Sender: FDA-Public Use
  Company Number: HU-NOVARTISPH-NVSC2021HU217351

PATIENT
  Sex: Female
  Weight: 88 kg

DRUGS (6)
  1. FLUTICASONE PROPIONATE\SALMETEROL XINAFOATE [Suspect]
     Active Substance: FLUTICASONE PROPIONATE\SALMETEROL XINAFOATE
     Indication: Asthma
     Dosage: 1 PUFF (2X)
     Route: 055
  2. AMLODIPINE [Suspect]
     Active Substance: AMLODIPINE BESYLATE
     Indication: Product used for unknown indication
     Dosage: 5 MG, QD
     Route: 048
  3. ATORVASTATIN [Suspect]
     Active Substance: ATORVASTATIN
     Indication: Product used for unknown indication
     Dosage: 40 MG, QD
     Route: 048
  4. NEBIVOLOL [Suspect]
     Active Substance: NEBIVOLOL
     Indication: Product used for unknown indication
     Dosage: 5 MG, QD
     Route: 048
  5. WARFARIN [Concomitant]
     Active Substance: WARFARIN
     Indication: Product used for unknown indication
     Dosage: 5 MG, QD
     Route: 065
  6. COVEREX AS KOMB [Concomitant]
     Indication: Product used for unknown indication
     Dosage: UNK, QD
     Route: 048

REACTIONS (9)
  - Hypercapnia [Recovered/Resolved]
  - Respiratory failure [Recovered/Resolved]
  - Somnolence [Unknown]
  - COVID-19 pneumonia [Unknown]
  - SARS-CoV-2 test positive [Unknown]
  - Altered state of consciousness [Recovered/Resolved]
  - Dyspnoea [Not Recovered/Not Resolved]
  - Altered state of consciousness [Unknown]
  - Body temperature abnormal [Unknown]

NARRATIVE: CASE EVENT DATE: 20210101
